FAERS Safety Report 7492224-4 (Version None)
Quarter: 2011Q2

REPORT INFORMATION
  Report Type: 
  Country: None (occurrence: None)
  Receive Date: 20110519
  Receipt Date: 20101124
  Transmission Date: 20111010
  Serious: No
  Sender: FDA-Public Use
  Company Number: US-NOVEN-ALL1-2010-06215

PATIENT
  Age: 13 Year
  Sex: Male
  Weight: 45.351 kg

DRUGS (4)
  1. DAYTRANA [Suspect]
     Dosage: 30 MG, 1X/DAY:QD
     Route: 062
     Dates: start: 20101001
  2. STRATTERA [Concomitant]
     Dosage: UNK, UNKNOWN
     Route: 048
  3. DAYTRANA [Suspect]
     Dosage: 20 MG, 1X/DAY:QD
     Route: 062
     Dates: start: 20090101, end: 20100101
  4. DAYTRANA [Suspect]
     Dosage: 20 MG, 1X/DAY:QD
     Route: 062
     Dates: start: 20100101, end: 20101001

REACTIONS (5)
  - EDUCATIONAL PROBLEM [None]
  - BODY HEIGHT INCREASED [None]
  - DISTURBANCE IN ATTENTION [None]
  - DRUG EFFECT DECREASED [None]
  - WEIGHT INCREASED [None]
